FAERS Safety Report 24586547 (Version 1)
Quarter: 2024Q4

REPORT INFORMATION
  Report Type: Spontaneous
  Country: CN (occurrence: CN)
  Receive Date: 20241106
  Receipt Date: 20241106
  Transmission Date: 20250115
  Serious: Yes (Hospitalization, Other)
  Sender: SANOFI AVENTIS
  Company Number: CN-SA-2024SA314155

PATIENT
  Age: 43 Year
  Sex: Male
  Weight: 75 kg

DRUGS (5)
  1. ELOXATIN [Suspect]
     Active Substance: OXALIPLATIN
     Indication: Colon cancer
     Dosage: 150 MG, 1X
     Route: 041
     Dates: start: 20241017, end: 20241017
  2. FLUOROURACIL [Suspect]
     Active Substance: FLUOROURACIL
     Indication: Colon cancer
     Dosage: 4.5 G, 1X
     Route: 041
     Dates: start: 20241017, end: 20241017
  3. LEUCOVORIN CALCIUM [Suspect]
     Active Substance: LEUCOVORIN CALCIUM
     Indication: Colon cancer
     Dosage: 700 MG, 1X
     Route: 041
     Dates: start: 20241017, end: 20241017
  4. ERBITUX [Suspect]
     Active Substance: CETUXIMAB
     Dosage: 800 MG, 1X
     Route: 041
     Dates: start: 20241017, end: 20241017
  5. YI MAI LIN [Concomitant]
     Indication: Colon cancer
     Dosage: 0.28 G, 1X
     Dates: start: 20241017, end: 20241017

REACTIONS (5)
  - Gastrointestinal disorder [Recovering/Resolving]
  - Abdominal pain [Recovering/Resolving]
  - Diarrhoea [Recovering/Resolving]
  - Haematochezia [Recovering/Resolving]
  - Tetany [Recovering/Resolving]

NARRATIVE: CASE EVENT DATE: 20241017
